FAERS Safety Report 6615758-0 (Version None)
Quarter: 2010Q1

REPORT INFORMATION
  Report Type: 
  Country: None (occurrence: None)
  Receive Date: 20100226
  Receipt Date: 20100218
  Transmission Date: 20100710
  Serious: Yes (Other)
  Sender: FDA-Public Use
  Company Number: 2010SP010612

PATIENT
  Age: 42 Year
  Sex: Female
  Weight: 75 kg

DRUGS (2)
  1. MARVELON 20 (DESOGESTREL/ ETHINYLESTRADIOL / 00570801/ ) [Suspect]
     Dates: start: 20100120, end: 20100209
  2. MARVELON 20 (DESOGESTREL/ ETHINYLESTRADIOL / 00570801/ ) [Suspect]
     Dates: start: 19980101

REACTIONS (2)
  - POLYCYSTIC OVARIES [None]
  - WITHDRAWAL BLEED [None]
